FAERS Safety Report 6557803-7 (Version None)
Quarter: 2010Q1

REPORT INFORMATION
  Report Type: 
  Country: None (occurrence: None)
  Receive Date: 20100128
  Receipt Date: 20100128
  Transmission Date: 20100710
  Serious: Yes (Life-Threatening)
  Sender: FDA-Public Use
  Company Number: None

PATIENT
  Age: 55 Year
  Sex: Female
  Weight: 68.0396 kg

DRUGS (1)
  1. TOPIRAMATE (TOPAMAX) [Suspect]
     Indication: COMPLEX PARTIAL SEIZURES
     Dosage: 1 GM ORAL BID
     Route: 048

REACTIONS (1)
  - CONVULSION [None]
